FAERS Safety Report 23950679 (Version 1)
Quarter: 2024Q2

REPORT INFORMATION
  Report Type: Report from Study
  Country: GB (occurrence: GB)
  Receive Date: 20240607
  Receipt Date: 20240607
  Transmission Date: 20240715
  Serious: No
  Sender: FDA-Public Use
  Company Number: GB-SPRINGWORKS THERAPEUTICS-SW-001633

PATIENT
  Age: 28 Year
  Sex: Male
  Weight: 84 kg

DRUGS (5)
  1. NIROGACESTAT [Suspect]
     Active Substance: NIROGACESTAT
     Indication: Desmoid tumour
     Dosage: 100 MILLIGRAM, BID
     Route: 048
     Dates: start: 20240112, end: 20240409
  2. NIROGACESTAT [Suspect]
     Active Substance: NIROGACESTAT
     Dosage: 100 MILLIGRAM, BID
     Route: 048
     Dates: start: 20240414
  3. MORPHINE SULFATE [Concomitant]
     Active Substance: MORPHINE SULFATE
     Indication: Arthralgia
     Dosage: 70 MILLIGRAM, BID
     Dates: start: 20200925
  4. AMITRIPTYLINE [Concomitant]
     Active Substance: AMITRIPTYLINE
     Indication: Arthralgia
     Dosage: 10 MILLIGRAM, HS
     Dates: start: 20200423
  5. MORPHINE [Concomitant]
     Active Substance: MORPHINE
     Indication: Arthralgia
     Dosage: 10 MILLIGRAM, PRN
     Route: 048
     Dates: start: 20200731

REACTIONS (2)
  - Diarrhoea [Recovered/Resolved]
  - Rectal haemorrhage [Recovered/Resolved]

NARRATIVE: CASE EVENT DATE: 20240409
